FAERS Safety Report 19673218 (Version 1)
Quarter: 2021Q3

REPORT INFORMATION
  Report Type: Spontaneous
  Country: TR (occurrence: TR)
  Receive Date: 20210809
  Receipt Date: 20210809
  Transmission Date: 20211014
  Serious: Yes (Hospitalization)
  Sender: FDA-Public Use
  Company Number: TR-ACCORD-234256

PATIENT
  Age: 53 Year
  Sex: Female

DRUGS (10)
  1. MYCOPHENOLATE [Concomitant]
     Active Substance: MYCOPHENOLIC ACID
     Indication: THYMOMA
     Dosage: 2*500 MG/D
     Route: 048
  2. MYCOPHENOLATE MOFETIL. [Concomitant]
     Active Substance: MYCOPHENOLATE MOFETIL
     Indication: MYASTHENIA GRAVIS
     Dosage: 2*500 MG/D
     Route: 048
  3. CYCLOPHOSPHAMIDE. [Suspect]
     Active Substance: CYCLOPHOSPHAMIDE
     Indication: THYMOMA
  4. PYRIDOSTIGMINE [Concomitant]
     Active Substance: PYRIDOSTIGMINE
     Indication: MYASTHENIA GRAVIS
  5. DOXORUBICIN [Suspect]
     Active Substance: DOXORUBICIN
     Indication: THYMOMA
  6. CISPLATIN. [Suspect]
     Active Substance: CISPLATIN
     Indication: MYASTHENIA GRAVIS
  7. PYRIDOSTIGMINE [Concomitant]
     Active Substance: PYRIDOSTIGMINE
     Indication: THYMOMA
  8. CYCLOPHOSPHAMIDE/CYCLOPHOSPHAMIDE MONOHYDRATE [Suspect]
     Active Substance: CYCLOPHOSPHAMIDE
     Indication: MYASTHENIA GRAVIS
  9. CISPLATIN. [Suspect]
     Active Substance: CISPLATIN
     Indication: THYMOMA
  10. DOXORUBICIN [Suspect]
     Active Substance: DOXORUBICIN
     Indication: MYASTHENIA GRAVIS

REACTIONS (2)
  - Thrombophlebitis [Unknown]
  - Pyoderma gangrenosum [Recovering/Resolving]
